FAERS Safety Report 9306548 (Version 2)
Quarter: 2013Q3

REPORT INFORMATION
  Report Type: Spontaneous
  Country: DE (occurrence: DE)
  Receive Date: 20130523
  Receipt Date: 20130816
  Transmission Date: 20140515
  Serious: Yes (Other)
  Sender: FDA-Public Use
  Company Number: DE-ABBOTT-13P-062-1093001-00

PATIENT
  Sex: Female
  Weight: 62 kg

DRUGS (2)
  1. HUMIRA [Suspect]
     Indication: RHEUMATOID ARTHRITIS
     Dosage: PZN 1248038
     Route: 058
     Dates: start: 201301, end: 20130415
  2. IBUPROFEN [Concomitant]
     Dosage: ON DEMAND THREE TO FOUR TABLETS PER WEEK

REACTIONS (4)
  - Spastic paralysis [Recovering/Resolving]
  - Activities of daily living impaired [Recovering/Resolving]
  - Hypergammaglobulinaemia benign monoclonal [Not Recovered/Not Resolved]
  - Pain [Recovering/Resolving]
